FAERS Safety Report 4391784-X (Version None)
Quarter: 2004Q3

REPORT INFORMATION
  Report Type: 
  Country: None (occurrence: None)
  Receive Date: 20040707
  Receipt Date: 20040602
  Transmission Date: 20050211
  Serious: Yes (Life-Threatening, Hospitalization)
  Sender: FDA-Public Use
  Company Number: BE-MERCK-0406BEL00018

PATIENT
  Age: 72 Year
  Sex: Male
  Weight: 85 kg

DRUGS (11)
  1. LIORESAL [Concomitant]
     Indication: MUSCULOSKELETAL STIFFNESS
     Route: 048
     Dates: start: 20040510, end: 20040523
  2. LIORESAL [Concomitant]
     Indication: MUSCLE SPASTICITY
     Route: 048
     Dates: start: 20040510, end: 20040523
  3. EMCONCOR [Concomitant]
     Indication: HYPERTENSION
     Route: 048
     Dates: start: 20040510, end: 20040523
  4. BUPRENORPHINE HYDROCHLORIDE [Concomitant]
     Indication: PAIN
     Route: 061
     Dates: start: 20040510, end: 20040523
  5. CANCIDAS [Suspect]
     Indication: ENDOCARDITIS CANDIDA
     Route: 042
     Dates: start: 20040406, end: 20040514
  6. DUOVENT [Concomitant]
     Indication: OBSTRUCTIVE AIRWAYS DISORDER
     Route: 055
     Dates: start: 20040404, end: 20040523
  7. FOLIC ACID [Concomitant]
     Indication: VITAMIN SUPPLEMENTATION
     Route: 048
     Dates: start: 20040404, end: 20040523
  8. TAVANIC [Concomitant]
     Indication: PSEUDOMONAS INFECTION
     Route: 065
     Dates: start: 20040511, end: 20040518
  9. MOVICOL [Concomitant]
     Indication: CONSTIPATION
     Route: 048
     Dates: start: 20010514
  10. ZANTAC [Concomitant]
     Indication: PROPHYLAXIS AGAINST GASTROINTESTINAL ULCER
     Route: 048
     Dates: start: 20040404, end: 20040523
  11. VITAMINS (UNSPECIFIED) [Concomitant]
     Indication: MEDICAL DIET
     Route: 048
     Dates: start: 20040404, end: 20040523

REACTIONS (1)
  - DRUG INEFFECTIVE [None]
